FAERS Safety Report 16169978 (Version 1)
Quarter: 2019Q2

REPORT INFORMATION
  Report Type: Spontaneous
  Country: US (occurrence: US)
  Receive Date: 20190305
  Receipt Date: 20190305
  Transmission Date: 20190711
  Serious: No
  Sender: FDA-Public Use
  Company Number: None

PATIENT
  Age: 80 Year
  Sex: Male

DRUGS (4)
  1. BELSOMRA [Concomitant]
     Active Substance: SUVOREXANT
  2. LORAZEPAM. [Concomitant]
     Active Substance: LORAZEPAM
  3. DILTIAZEM. [Concomitant]
     Active Substance: DILTIAZEM
  4. ERLEADA [Suspect]
     Active Substance: APALUTAMIDE
     Indication: PROSTATE CANCER
     Route: 048
     Dates: start: 20181121, end: 20190215

REACTIONS (4)
  - Prostatic specific antigen increased [None]
  - Disease progression [None]
  - Anxiety [None]
  - Dyspnoea [None]

NARRATIVE: CASE EVENT DATE: 20180215
